FAERS Safety Report 8109134 (Version 2)
Quarter: 2013Q4

REPORT INFORMATION
  Report Type: Spontaneous
  Country: US (occurrence: US)
  Receive Date: 20110826
  Receipt Date: 20131127
  Transmission Date: 20140711
  Serious: Yes (Other)
  Sender: FDA-Public Use
  Company Number: US-BAYER-2011-075048

PATIENT
  Sex: Female

DRUGS (2)
  1. YAZ [Suspect]
  2. YASMIN [Suspect]

REACTIONS (2)
  - Gallbladder injury [None]
  - Cholecystitis [None]
